FAERS Safety Report 5349193-2 (Version None)
Quarter: 2007Q2

REPORT INFORMATION
  Report Type: 
  Country: None (occurrence: None)
  Receive Date: 20070607
  Receipt Date: 20070528
  Transmission Date: 20071010
  Serious: Yes (Hospitalization)
  Sender: FDA-Public Use
  Company Number: AU-GENENTECH-241833

PATIENT
  Sex: Female
  Weight: 69.3 kg

DRUGS (5)
  1. BLINDED BEVACIZUMAB [Suspect]
     Indication: BREAST CANCER METASTATIC
     Dosage: 520 MG, Q3W
     Route: 042
  2. BLINDED DOCETAXEL [Suspect]
     Indication: BREAST CANCER METASTATIC
     Dosage: 520 MG, Q3W
     Route: 042
  3. BLINDED PLACEBO [Suspect]
     Indication: BREAST CANCER METASTATIC
     Dosage: 520 MG, Q3W
     Route: 042
  4. DOCETAXEL [Suspect]
     Indication: BREAST CANCER METASTATIC
     Dosage: 145 MG, Q3W
     Route: 042
     Dates: start: 20070426
  5. PERINDOPRIL ERBUMINE [Concomitant]
     Indication: DRUG USE FOR UNKNOWN INDICATION

REACTIONS (2)
  - JOINT SWELLING [None]
  - NEUTROPENIC INFECTION [None]
